FAERS Safety Report 8994597 (Version 1)
Quarter: 2012Q4

REPORT INFORMATION
  Report Type: Spontaneous
  Country: US (occurrence: None)
  Receive Date: 20121228
  Receipt Date: 20121228
  Transmission Date: 20130627
  Serious: Yes (Other)
  Sender: FDA-Public Use
  Company Number: None

PATIENT
  Age: 67 Year
  Sex: Female
  Weight: 69.4 kg

DRUGS (1)
  1. SAVELLA 25 MG FOREST PHARMACEUTICALS [Suspect]
     Indication: FIBROMYALGIA
     Route: 048
     Dates: start: 20121217, end: 20121226

REACTIONS (4)
  - Nausea [None]
  - Dizziness [None]
  - Hot flush [None]
  - Headache [None]
